FAERS Safety Report 5487887-9 (Version None)
Quarter: 2007Q4

REPORT INFORMATION
  Report Type: 
  Country: None (occurrence: None)
  Receive Date: 20071017
  Receipt Date: 20071012
  Transmission Date: 20080405
  Serious: Yes (Other)
  Sender: FDA-Public Use
  Company Number: US-BRISTOL-MYERS SQUIBB COMPANY-13940093

PATIENT
  Sex: Male

DRUGS (1)
  1. ORENCIA FOR INJ [Suspect]
     Route: 042

REACTIONS (1)
  - VISUAL ACUITY REDUCED [None]
